FAERS Safety Report 20139122 (Version 1)
Quarter: 2021Q4

REPORT INFORMATION
  Report Type: Spontaneous
  Country: US (occurrence: US)
  Receive Date: 20211202
  Receipt Date: 20211202
  Transmission Date: 20220303
  Serious: No
  Sender: FDA-Public Use
  Company Number: US-009507513-2111USA001617

PATIENT
  Age: 49 Year
  Sex: Male

DRUGS (15)
  1. NOXAFIL [Suspect]
     Active Substance: POSACONAZOLE
     Indication: Sinusitis fungal
     Dosage: 300 MG EVERY 12 H ON THE FIRST DAY
     Route: 048
     Dates: start: 2020
  2. NOXAFIL [Suspect]
     Active Substance: POSACONAZOLE
     Dosage: 300 MILLIGRAM, QD
     Route: 048
     Dates: start: 2020
  3. LEVETIRACETAM [Concomitant]
     Active Substance: LEVETIRACETAM
     Indication: Encephalitis
     Dosage: UNK
     Dates: start: 2020, end: 2020
  4. LEVETIRACETAM [Concomitant]
     Active Substance: LEVETIRACETAM
     Indication: Sinusitis
  5. CEFEPIME [Concomitant]
     Active Substance: CEFEPIME HYDROCHLORIDE
     Indication: Encephalitis
     Dosage: UNK
     Route: 042
     Dates: start: 2020, end: 2020
  6. CEFEPIME [Concomitant]
     Active Substance: CEFEPIME HYDROCHLORIDE
     Indication: Sinusitis
  7. VANCOMYCIN [Concomitant]
     Active Substance: VANCOMYCIN
     Indication: Encephalitis
     Dosage: UNK
     Route: 042
     Dates: start: 2020, end: 2020
  8. VANCOMYCIN [Concomitant]
     Active Substance: VANCOMYCIN
     Indication: Sinusitis
  9. METRONIDAZOLE [Concomitant]
     Active Substance: METRONIDAZOLE
     Indication: Encephalitis
     Dosage: UNK
     Route: 042
     Dates: start: 2020, end: 2020
  10. METRONIDAZOLE [Concomitant]
     Active Substance: METRONIDAZOLE
     Indication: Sinusitis
  11. AMPHOTERICIN B [Concomitant]
     Active Substance: AMPHOTERICIN B
     Indication: Sinusitis
     Dosage: 5 MILLIGRAM/KILOGRAM
     Route: 042
     Dates: start: 2020, end: 2020
  12. AMPHOTERICIN B [Concomitant]
     Active Substance: AMPHOTERICIN B
     Dosage: 10 MILLIGRAM/KILOGRAM
     Route: 042
     Dates: start: 2020, end: 2020
  13. MEROPENEM [Concomitant]
     Active Substance: MEROPENEM
     Indication: Sinusitis
     Dosage: 2 GRAM, Q8H
     Route: 042
     Dates: start: 2020
  14. MEROPENEM [Concomitant]
     Active Substance: MEROPENEM
     Indication: Encephalitis
  15. MEROPENEM [Concomitant]
     Active Substance: MEROPENEM
     Indication: Abscess

REACTIONS (1)
  - Product use in unapproved indication [Unknown]
